FAERS Safety Report 21311788 (Version 1)
Quarter: 2022Q3

REPORT INFORMATION
  Report Type: Spontaneous
  Country: US (occurrence: None)
  Receive Date: 20220909
  Receipt Date: 20220909
  Transmission Date: 20221027
  Serious: No
  Sender: FDA-Public Use
  Company Number: US-FARMAPROD-202203-0456

PATIENT
  Age: 72 Year
  Sex: Male

DRUGS (7)
  1. OXERVATE [Suspect]
     Active Substance: CENEGERMIN-BKBJ
     Indication: Corneal disorder
     Route: 047
     Dates: start: 20220310
  2. ARTIFICIAL TEARS [Concomitant]
     Active Substance: GLYCERIN\HYPROMELLOSES\POLYETHYLENE GLYCOL 400
     Dosage: 0.1%-0.3%
  3. TIMOLOL-BRIMONIDIN-DORZOLAMIDE [Concomitant]
  4. ATENOLOL [Concomitant]
     Active Substance: ATENOLOL
  5. SIMVASTATIN [Concomitant]
     Active Substance: SIMVASTATIN
  6. LATANOPROST [Concomitant]
     Active Substance: LATANOPROST
  7. SERUM TEARS [Concomitant]

REACTIONS (2)
  - Dizziness [Unknown]
  - Headache [Unknown]

NARRATIVE: CASE EVENT DATE: 20220301
